FAERS Safety Report 7497751-1 (Version None)
Quarter: 2011Q2

REPORT INFORMATION
  Report Type: 
  Country: None (occurrence: None)
  Receive Date: 20110523
  Receipt Date: 20110516
  Transmission Date: 20111010
  Serious: Yes (Death)
  Sender: FDA-Public Use
  Company Number: US-CELGENEUS-163-21660-11042252

PATIENT
  Sex: Male

DRUGS (1)
  1. ABRAXANE [Suspect]
     Dosage: 100 MILLIGRAM/SQ. METER
     Route: 051
     Dates: start: 20101014, end: 20101114

REACTIONS (1)
  - METASTATIC MALIGNANT MELANOMA [None]
